FAERS Safety Report 5625623-3 (Version None)
Quarter: 2008Q1

REPORT INFORMATION
  Report Type: 
  Country: None (occurrence: None)
  Receive Date: 20080214
  Receipt Date: 20071022
  Transmission Date: 20080703
  Serious: No
  Sender: FDA-Public Use
  Company Number: US-BAYER-US-2007-040324

PATIENT
  Age: 20 Year
  Sex: Female
  Weight: 66 kg

DRUGS (1)
  1. MIRENA [Suspect]
     Indication: CONTRACEPTION
     Route: 015
     Dates: start: 20070520, end: 20070915

REACTIONS (3)
  - ABDOMINAL PAIN [None]
  - ALOPECIA [None]
  - WEIGHT INCREASED [None]
